FAERS Safety Report 4503109-7 (Version None)
Quarter: 2004Q4

REPORT INFORMATION
  Report Type: 
  Country: None (occurrence: None)
  Receive Date: 20041117
  Receipt Date: 20041111
  Transmission Date: 20050328
  Serious: Yes (Hospitalization)
  Sender: FDA-Public Use
  Company Number: BR-ROCHE-386187

PATIENT
  Age: 75 Year
  Sex: Female
  Weight: 64 kg

DRUGS (3)
  1. RIVOTRIL [Suspect]
     Indication: ANXIETY
     Route: 048
     Dates: start: 19940615, end: 20040615
  2. RIVOTRIL [Suspect]
     Route: 048
     Dates: start: 20040615
  3. CLORANA [Concomitant]
     Indication: HYPERTENSION
     Route: 048

REACTIONS (4)
  - DRUG WITHDRAWAL SYNDROME [None]
  - PYREXIA [None]
  - RESTLESSNESS [None]
  - TINNITUS [None]
